FAERS Safety Report 8517428-0 (Version None)
Quarter: 2012Q3

REPORT INFORMATION
  Report Type: 
  Country: None (occurrence: None)
  Receive Date: 20120718
  Receipt Date: 20120716
  Transmission Date: 20120928
  Serious: No
  Sender: FDA-Public Use
  Company Number: US-PFIZER INC-2012138731

PATIENT
  Sex: Female
  Weight: 49.887 kg

DRUGS (3)
  1. BENADRYL [Concomitant]
     Indication: HYPERSENSITIVITY
     Dosage: UNK
  2. RELPAX [Suspect]
     Indication: MIGRAINE
     Dosage: 20 MG, DAILY AS NEEDED
     Route: 048
     Dates: start: 20120501, end: 20120607
  3. CLARITIN [Concomitant]
     Indication: HYPERSENSITIVITY
     Dosage: UNK

REACTIONS (4)
  - PAIN IN JAW [None]
  - MYALGIA [None]
  - HEADACHE [None]
  - DRUG INEFFECTIVE [None]
